FAERS Safety Report 15661625 (Version 1)
Quarter: 2018Q4

REPORT INFORMATION
  Report Type: Report from Study
  Country: CO (occurrence: CO)
  Receive Date: 20181127
  Receipt Date: 20181127
  Transmission Date: 20190205
  Serious: Yes (Death, Hospitalization, Other)
  Sender: FDA-Public Use
  Company Number: CO-ASTRAZENECA-2018SF54428

PATIENT
  Age: 19971 Day
  Sex: Female

DRUGS (1)
  1. FASLODEX [Suspect]
     Active Substance: FULVESTRANT
     Indication: BREAST CANCER FEMALE
     Route: 030
     Dates: start: 20181011, end: 20181016

REACTIONS (4)
  - Death [Fatal]
  - Abdominal distension [Unknown]
  - Abdominal pain [Unknown]
  - Disease complication [Unknown]

NARRATIVE: CASE EVENT DATE: 20181016
